FAERS Safety Report 9219635 (Version 1)
Quarter: 2013Q2

REPORT INFORMATION
  Report Type: Spontaneous
  Country: US (occurrence: None)
  Receive Date: 20130408
  Receipt Date: 20130408
  Transmission Date: 20140414
  Serious: Yes (Life-Threatening, Hospitalization)
  Sender: FDA-Public Use
  Company Number: None

PATIENT
  Age: 18 Year
  Sex: Female
  Weight: 54.43 kg

DRUGS (2)
  1. GIANVI [Suspect]
     Route: 048
     Dates: start: 20120326, end: 20130329
  2. VESTURA [Suspect]
     Route: 048
     Dates: start: 20120423, end: 20120723

REACTIONS (5)
  - Dyspnoea exertional [None]
  - Palpitations [None]
  - Gait disturbance [None]
  - Bronchospasm [None]
  - Pulmonary embolism [None]
